FAERS Safety Report 10232962 (Version 1)
Quarter: 2014Q2

REPORT INFORMATION
  Report Type: Spontaneous
  Country: US (occurrence: None)
  Receive Date: 20140610
  Receipt Date: 20140610
  Transmission Date: 20141212
  Serious: Yes (Other)
  Sender: FDA-Public Use
  Company Number: 20140266

PATIENT
  Age: 49 Year
  Sex: Female
  Weight: 52 kg

DRUGS (2)
  1. VENOFER [Suspect]
     Indication: IRON DEFICIENCY ANAEMIA
     Route: 042
     Dates: start: 20140424, end: 20140424
  2. ACETAMINOPHEN [Concomitant]

REACTIONS (5)
  - Rash [None]
  - Pruritus [None]
  - Off label use [None]
  - Pain [None]
  - Fatigue [None]
